FAERS Safety Report 22642613 (Version 1)
Quarter: 2023Q2

REPORT INFORMATION
  Report Type: Report from Study
  Country: BG (occurrence: BG)
  Receive Date: 20230627
  Receipt Date: 20230627
  Transmission Date: 20230721
  Serious: Yes (Hospitalization)
  Sender: FDA-Public Use
  Company Number: BG-ABBVIE-5303872

PATIENT
  Age: 87 Year
  Sex: Male

DRUGS (5)
  1. RINVOQ [Suspect]
     Active Substance: UPADACITINIB
     Indication: Ankylosing spondylitis
     Dosage: 15 MILLIGRAM
     Route: 048
     Dates: start: 202209
  2. DEHYDRATIN NEO [Concomitant]
     Indication: Product used for unknown indication
  3. IRBESAN [Concomitant]
     Indication: Product used for unknown indication
  4. NEOGLIM [Concomitant]
     Indication: Product used for unknown indication
  5. FERRO FOLGAMMA [Concomitant]
     Indication: Product used for unknown indication

REACTIONS (1)
  - COVID-19 [Unknown]
